FAERS Safety Report 23939082 (Version 1)
Quarter: 2024Q2

REPORT INFORMATION
  Report Type: Spontaneous
  Country: PL (occurrence: PL)
  Receive Date: 20240604
  Receipt Date: 20240604
  Transmission Date: 20240716
  Serious: Yes (Hospitalization)
  Sender: FDA-Public Use
  Company Number: PL-STRIDES ARCOLAB LIMITED-2024SP006439

PATIENT
  Age: 72 Year
  Sex: Male

DRUGS (1)
  1. METHOTREXATE [Suspect]
     Active Substance: METHOTREXATE
     Indication: Rheumatoid arthritis
     Dosage: 15 MILLIGRAM, ONCE A WEEK (METHOTREXATE TABLET 15MG ONCE WEEKLY; DOSAGE: 7.5 MG (THREE TABLETS OF 2.
     Route: 065

REACTIONS (4)
  - Leukopenia [Recovered/Resolved]
  - Accidental overdose [Unknown]
  - Toxicity to various agents [Unknown]
  - Thrombocytopenia [Recovered/Resolved]
